FAERS Safety Report 7601449-6 (Version None)
Quarter: 2011Q2

REPORT INFORMATION
  Report Type: 
  Country: None (occurrence: None)
  Receive Date: 20110629
  Receipt Date: 20110615
  Transmission Date: 20111010
  Serious: Yes (Hospitalization, Other)
  Sender: FDA-Public Use
  Company Number: 2011MA007231

PATIENT
  Age: 28 Year
  Sex: Female

DRUGS (7)
  1. MIDAZOLAM HCL [Suspect]
     Indication: SEDATION
  2. ONDANSETRON [Suspect]
  3. PROPOFOL [Suspect]
  4. SCOPOLAMINE [Suspect]
     Indication: NAUSEA
     Dosage: 1.5 MG, TDER
     Route: 062
  5. SCOPOLAMINE [Suspect]
     Indication: VOMITING
     Dosage: 1.5 MG, TDER
     Route: 062
  6. DEXAMETHASONE [Suspect]
  7. CITALOPRAM HYDROBROMIDE [Suspect]
     Indication: DEPRESSION

REACTIONS (6)
  - TACHYCARDIA [None]
  - UNRESPONSIVE TO STIMULI [None]
  - MYDRIASIS [None]
  - ANKLE OPERATION [None]
  - ANTICHOLINERGIC SYNDROME [None]
  - DEPRESSED LEVEL OF CONSCIOUSNESS [None]
